FAERS Safety Report 25154711 (Version 4)
Quarter: 2025Q2

REPORT INFORMATION
  Report Type: Spontaneous
  Country: CN (occurrence: CN)
  Receive Date: 20250403
  Receipt Date: 20250505
  Transmission Date: 20250717
  Serious: Yes (Hospitalization)
  Sender: NOVARTIS
  Company Number: CN-002147023-NVSC2025CN052115

PATIENT
  Age: 55 Year
  Sex: Male

DRUGS (1)
  1. FABHALTA [Suspect]
     Active Substance: IPTACOPAN HYDROCHLORIDE
     Indication: Paroxysmal nocturnal haemoglobinuria
     Dosage: 200 MG, BID
     Route: 048
     Dates: start: 20250201

REACTIONS (9)
  - Nausea [Recovered/Resolved]
  - Vomiting [Recovered/Resolved]
  - Pyrexia [Recovered/Resolved]
  - Asthenia [Recovered/Resolved]
  - Blood potassium decreased [Recovered/Resolved]
  - Norovirus infection [Recovered/Resolved]
  - Arthralgia [Recovering/Resolving]
  - Somnolence [Unknown]
  - Decreased appetite [Unknown]

NARRATIVE: CASE EVENT DATE: 20250324
